FAERS Safety Report 6258871-2 (Version None)
Quarter: 2009Q3

REPORT INFORMATION
  Report Type: 
  Country: None (occurrence: None)
  Receive Date: 20090707
  Receipt Date: 20090702
  Transmission Date: 20100115
  Serious: Yes (Other)
  Sender: FDA-Public Use
  Company Number: US-ASTRAZENECA-2009UW18536

PATIENT
  Age: 84 Year
  Sex: Male

DRUGS (2)
  1. CRESTOR [Suspect]
     Route: 048
     Dates: start: 20070101, end: 20080101
  2. CRESTOR [Suspect]
     Route: 048
     Dates: start: 20080101, end: 20090101

REACTIONS (1)
  - STENT PLACEMENT [None]
